FAERS Safety Report 13390764 (Version 1)
Quarter: 2017Q1

REPORT INFORMATION
  Report Type: Spontaneous
  Country: US (occurrence: US)
  Receive Date: 20170331
  Receipt Date: 20170331
  Transmission Date: 20170429
  Serious: No
  Sender: FDA-Public Use
  Company Number: None

PATIENT

DRUGS (2)
  1. ONDANSETRON [Suspect]
     Active Substance: ONDANSETRON
  2. PITOCIN [Suspect]
     Active Substance: OXYTOCIN

REACTIONS (3)
  - Drug dispensing error [None]
  - Product packaging confusion [None]
  - Product label confusion [None]
